FAERS Safety Report 24035195 (Version 3)
Quarter: 2025Q1

REPORT INFORMATION
  Report Type: Spontaneous
  Country: US (occurrence: US)
  Receive Date: 20240701
  Receipt Date: 20250106
  Transmission Date: 20250409
  Serious: No
  Sender: ROCHE
  Company Number: US-ROCHE-10000011093

PATIENT

DRUGS (5)
  1. XOFLUZA [Suspect]
     Active Substance: BALOXAVIR MARBOXIL
     Indication: Influenza
     Route: 048
  2. XOFLUZA [Suspect]
     Active Substance: BALOXAVIR MARBOXIL
     Indication: Antiviral prophylaxis
  3. XOFLUZA [Suspect]
     Active Substance: BALOXAVIR MARBOXIL
     Indication: Immunisation
  4. XOFLUZA [Suspect]
     Active Substance: BALOXAVIR MARBOXIL
     Indication: Infection
  5. XOFLUZA [Suspect]
     Active Substance: BALOXAVIR MARBOXIL
     Indication: Immunisation

REACTIONS (2)
  - Product dose omission issue [Unknown]
  - No adverse event [Unknown]

NARRATIVE: CASE EVENT DATE: 20240624
